FAERS Safety Report 22537755 (Version 2)
Quarter: 2023Q2

REPORT INFORMATION
  Report Type: Spontaneous
  Country: US (occurrence: US)
  Receive Date: 20230608
  Receipt Date: 20230610
  Transmission Date: 20230722
  Serious: No
  Sender: FDA-Public Use
  Company Number: US-002147023-NVSC2023US131465

PATIENT

DRUGS (1)
  1. ILARIS [Suspect]
     Active Substance: CANAKINUMAB
     Indication: Familial mediterranean fever
     Dosage: 12 MG/KG, QMO
     Route: 058

REACTIONS (2)
  - Therapeutic response shortened [Not Recovered/Not Resolved]
  - Incorrect dose administered [Not Recovered/Not Resolved]
